FAERS Safety Report 4423682-7 (Version None)
Quarter: 2004Q3

REPORT INFORMATION
  Report Type: 
  Country: None (occurrence: None)
  Receive Date: 20040714
  Receipt Date: 20040510
  Transmission Date: 20050211
  Serious: Yes (Other)
  Sender: FDA-Public Use
  Company Number: HQWYE863912MAY04

PATIENT
  Age: 51 Year
  Sex: Female
  Weight: 49.94 kg

DRUGS (6)
  1. ALAVERT [Suspect]
     Indication: EYE PRURITUS
     Dosage: 1 TABLET X 1, ORAL
     Route: 048
     Dates: start: 20040401, end: 20040401
  2. ALAVERT [Suspect]
     Indication: LACRIMATION INCREASED
     Dosage: 1 TABLET X 1, ORAL
     Route: 048
     Dates: start: 20040401, end: 20040401
  3. ALAVERT [Suspect]
     Indication: RHINORRHOEA
     Dosage: 1 TABLET X 1, ORAL
     Route: 048
     Dates: start: 20040401, end: 20040401
  4. ALAVERT [Suspect]
     Indication: SNEEZING
     Dosage: 1 TABLET X 1, ORAL
     Route: 048
     Dates: start: 20040401, end: 20040401
  5. ALAVERT [Suspect]
     Dosage: 1 TABLET; ORAL
     Route: 048
     Dates: start: 20040509
  6. FOSAMAX [Concomitant]

REACTIONS (3)
  - BLOOD PRESSURE INCREASED [None]
  - FEELING ABNORMAL [None]
  - HEART RATE INCREASED [None]
